FAERS Safety Report 8998582 (Version 1)
Quarter: 2013Q1

REPORT INFORMATION
  Report Type: Report from Study
  Country: HU (occurrence: HU)
  Receive Date: 20130103
  Receipt Date: 20130103
  Transmission Date: 20140127
  Serious: Yes (Hospitalization)
  Sender: FDA-Public Use
  Company Number: HU-ASTELLAS-2012EU011438

PATIENT
  Age: 69 Year
  Sex: Female
  Weight: 68 kg

DRUGS (7)
  1. SOLIFENACIN [Suspect]
     Indication: HYPERTONIC BLADDER
     Dosage: UNK
     Route: 048
  2. CAVINTON [Concomitant]
     Indication: HEADACHE
     Dosage: 20 MG, UNKNOWN/D
     Route: 048
     Dates: start: 2011
  3. SIBELIUM                           /00505202/ [Concomitant]
     Indication: VERTIGO
     Dosage: 10 MG, UNKNOWN/D
     Route: 048
     Dates: start: 20110819
  4. ATROMBIN                           /00042901/ [Concomitant]
     Indication: PROPHYLAXIS
     Dosage: 75 MG, UNKNOWN/D
     Route: 048
     Dates: start: 20120328
  5. CO-ARBARTAN [Concomitant]
     Indication: HYPERTENSION
     Dosage: UNK
     Route: 048
  6. ATORVASTATIN TEVA [Concomitant]
     Indication: HYPERCHOLESTEROLAEMIA
     Dosage: 40 MG, UNKNOWN/D
     Route: 048
     Dates: start: 20090515
  7. PAFENON [Concomitant]
     Indication: PROPHYLAXIS AGAINST GASTROINTESTINAL ULCER
     Dosage: 20 MG, UNKNOWN/D
     Route: 048
     Dates: start: 20110502

REACTIONS (1)
  - Vertigo [Recovered/Resolved]
